FAERS Safety Report 7374938-X (Version None)
Quarter: 2011Q1

REPORT INFORMATION
  Report Type: 
  Country: None (occurrence: None)
  Receive Date: 20110324
  Receipt Date: 20110318
  Transmission Date: 20110831
  Serious: Yes (Hospitalization)
  Sender: FDA-Public Use
  Company Number: DL2011-0214

PATIENT
  Age: 26 Year
  Sex: Female

DRUGS (3)
  1. DOXYCYCLINE [Concomitant]
  2. MISOPROSTOL [Suspect]
     Dosage: 800 MCG, BUCCAL
     Route: 002
  3. MIFEPREX [Suspect]
     Indication: ABORTION INDUCED
     Dosage: 200 MG, ORAL
     Route: 048
     Dates: start: 20110104

REACTIONS (6)
  - PYREXIA [None]
  - HAEMORRHAGE [None]
  - ABORTION INCOMPLETE [None]
  - MUSCLE SPASMS [None]
  - ABDOMINAL PAIN [None]
  - PELVIC INFLAMMATORY DISEASE [None]
